FAERS Safety Report 8760840 (Version 1)
Quarter: 2012Q4

REPORT INFORMATION
  Report Type: 
  Country: US (occurrence: US)
  Receive Date: 20120830
  Receipt Date: 20120830
  Transmission Date: 20130627
  Serious: Yes (Hospitalization)
  Sender: FDA-Public Use
  Company Number: US-ABBOTT-12P-163-0970605-00

PATIENT
  Sex: Female
  Weight: 51.76 kg

DRUGS (5)
  1. HUMIRA 40 MG/ 0.8 ML PRE-FILLED SYRINGE [Suspect]
     Indication: RHEUMATOID ARTHRITIS
     Route: 065
     Dates: start: 201105, end: 201112
  2. SIMPONI [Suspect]
     Indication: RHEUMATOID ARTHRITIS
     Route: 058
     Dates: start: 201103, end: 201104
  3. XOPENEX [Suspect]
     Indication: RESPIRATORY DISORDER
     Route: 055
     Dates: start: 201107
  4. METHOTREXATE [Suspect]
     Indication: RHEUMATOID ARTHRITIS
     Route: 048
     Dates: start: 20120619
  5. UNSPECIFIED INGREDIENT [Suspect]
     Indication: RESPIRATORY DISORDER
     Route: 055
     Dates: start: 201107

REACTIONS (12)
  - Asthenia [Not Recovered/Not Resolved]
  - Respiratory disorder [Unknown]
  - Fatigue [Not Recovered/Not Resolved]
  - Adverse event [Unknown]
  - Dry skin [Unknown]
  - Skin exfoliation [Unknown]
  - Weight decreased [Recovering/Resolving]
  - Abdominal discomfort [Unknown]
  - Weight increased [Not Recovered/Not Resolved]
  - Decreased appetite [Not Recovered/Not Resolved]
  - Insomnia [Not Recovered/Not Resolved]
  - Dyspnoea [Not Recovered/Not Resolved]
